FAERS Safety Report 4299409-9 (Version None)
Quarter: 2004Q1

REPORT INFORMATION
  Report Type: 
  Country: None (occurrence: None)
  Receive Date: 20040217
  Receipt Date: 20040205
  Transmission Date: 20041129
  Serious: Yes (Other)
  Sender: FDA-Public Use
  Company Number: US-JNJFOC-20030905779

PATIENT
  Age: 64 Year
  Sex: Female
  Weight: 72.5755 kg

DRUGS (7)
  1. REMICADE [Suspect]
     Indication: RHEUMATOID ARTHRITIS
     Dosage: 1 IN 1 DAY, INTRAVENOUS
     Route: 042
  2. METHOTREXATE [Concomitant]
  3. FOSAMAX [Concomitant]
  4. PREDNISONE [Concomitant]
  5. CALCIUM (CALCIUM) [Concomitant]
  6. MULTIVITAMIN [Concomitant]
  7. FOLIC ACID [Concomitant]

REACTIONS (6)
  - BLOOD PRESSURE INCREASED [None]
  - BODY TEMPERATURE INCREASED [None]
  - CHILLS [None]
  - FEELING COLD [None]
  - HEART RATE INCREASED [None]
  - SHOCK [None]
